FAERS Safety Report 23048873 (Version 2)
Quarter: 2023Q4

REPORT INFORMATION
  Report Type: Report from Study
  Country: CA (occurrence: None)
  Receive Date: 20231010
  Receipt Date: 20231011
  Transmission Date: 20240110
  Serious: Yes (Other)
  Sender: FDA-Public Use
  Company Number: 2023A226921

PATIENT
  Age: 85 Year
  Sex: Male

DRUGS (1)
  1. CALQUENCE [Suspect]
     Active Substance: ACALABRUTINIB
     Indication: Chronic lymphocytic leukaemia
     Route: 048
     Dates: start: 20230607, end: 20231004

REACTIONS (4)
  - Cognitive disorder [Unknown]
  - Amnesia [Unknown]
  - Confusional state [Unknown]
  - Irritability [Unknown]

NARRATIVE: CASE EVENT DATE: 20230101
